FAERS Safety Report 6875032-4 (Version None)
Quarter: 2010Q3

REPORT INFORMATION
  Report Type: 
  Country: None (occurrence: None)
  Receive Date: 20100727
  Receipt Date: 20100722
  Transmission Date: 20110219
  Serious: Yes (Hospitalization, Other)
  Sender: FDA-Public Use
  Company Number: IN-AMGEN-UK243763

PATIENT
  Sex: Female

DRUGS (12)
  1. DENOSUMAB [Suspect]
     Indication: METASTASES TO BONE
     Route: 058
     Dates: start: 20070515
  2. ZOMETA [Suspect]
     Indication: METASTASES TO BONE
     Route: 042
     Dates: start: 20070515
  3. TRAMADOL HYDROCHLORIDE [Suspect]
     Route: 048
     Dates: start: 20070904, end: 20070908
  4. CALCIUM [Concomitant]
     Route: 048
     Dates: start: 20070515
  5. VITAMIN D [Concomitant]
     Route: 065
     Dates: start: 20070515
  6. IBUPROFEN TABLETS [Concomitant]
     Route: 065
     Dates: start: 20070731, end: 20070814
  7. PARACETAMOL [Concomitant]
     Route: 065
     Dates: start: 20070731, end: 20070814
  8. RANITIDINE [Concomitant]
     Route: 065
     Dates: start: 20070731, end: 20070814
  9. METOCLOPRAMIDE [Concomitant]
     Route: 048
     Dates: start: 20070904
  10. ATENOLOL [Concomitant]
     Route: 048
     Dates: start: 20070904
  11. DIAZEPAM [Concomitant]
     Route: 048
     Dates: start: 20070904
  12. PREDNISOLONE [Concomitant]
     Route: 048
     Dates: start: 20070731, end: 20070814

REACTIONS (3)
  - MUSCULOSKELETAL CHEST PAIN [None]
  - NAUSEA [None]
  - VOMITING [None]
